FAERS Safety Report 9002141 (Version 1)
Quarter: 2013Q1

REPORT INFORMATION
  Report Type: Spontaneous
  Country: PL (occurrence: PL)
  Receive Date: 20130107
  Receipt Date: 20130107
  Transmission Date: 20140127
  Serious: Yes (Death, Hospitalization)
  Sender: FDA-Public Use
  Company Number: PL-ELI_LILLY_AND_COMPANY-PL201301001361

PATIENT
  Sex: Female

DRUGS (2)
  1. ALIMTA [Suspect]
     Indication: PLEURAL MESOTHELIOMA
  2. CISPLATIN [Concomitant]
     Indication: MESOTHELIOMA

REACTIONS (2)
  - Death [Fatal]
  - Loss of consciousness [Unknown]
